FAERS Safety Report 8458469-1 (Version None)
Quarter: 2012Q2

REPORT INFORMATION
  Report Type: 
  Country: None (occurrence: None)
  Receive Date: 20120622
  Receipt Date: 20120619
  Transmission Date: 20120825
  Serious: Yes (Other)
  Sender: FDA-Public Use
  Company Number: US-BAYER-2012-052287

PATIENT
  Age: 63 Year
  Sex: Female

DRUGS (1)
  1. NEXAVAR [Suspect]
     Indication: HEPATIC NEOPLASM MALIGNANT
     Dosage: 200 MG, BID
     Dates: start: 20120516

REACTIONS (6)
  - DIARRHOEA [None]
  - APHAGIA [None]
  - CHEST PAIN [None]
  - FATIGUE [None]
  - FLATULENCE [None]
  - DECREASED APPETITE [None]
